FAERS Safety Report 8162482-1 (Version None)
Quarter: 2012Q1

REPORT INFORMATION
  Report Type: 
  Country: None (occurrence: None)
  Receive Date: 20120224
  Receipt Date: 20120224
  Transmission Date: 20120608
  Serious: Yes (Hospitalization)
  Sender: FDA-Public Use
  Company Number: None

PATIENT
  Sex: Male
  Weight: 85.728 kg

DRUGS (2)
  1. PRADAXA [Suspect]
     Indication: CEREBROVASCULAR ACCIDENT PROPHYLAXIS
     Dosage: 150 MG
     Route: 048
  2. PRADAXA [Suspect]
     Indication: ATRIAL FIBRILLATION
     Dosage: 150 MG
     Route: 048

REACTIONS (8)
  - SYNCOPE [None]
  - SPLEEN DISORDER [None]
  - HAEMATOMA [None]
  - ABDOMINAL PAIN [None]
  - MASS [None]
  - SPLENIC HAEMORRHAGE [None]
  - FATIGUE [None]
  - SPLENIC RUPTURE [None]
